FAERS Safety Report 13067997 (Version 1)
Quarter: 2016Q4

REPORT INFORMATION
  Report Type: Spontaneous
  Country: US (occurrence: US)
  Receive Date: 20161228
  Receipt Date: 20161228
  Transmission Date: 20170207
  Serious: Yes (Hospitalization)
  Sender: FDA-Public Use
  Company Number: US-FRESENIUS MEDICAL CARE RENAL THERAPIES GROUP-FMC-1610-001186

PATIENT
  Sex: Female

DRUGS (3)
  1. DELFLEX [Suspect]
     Active Substance: CALCIUM CHLORIDE\DEXTROSE\MAGNESIUM CHLORIDE\SODIUM CHLORIDE\SODIUM LACTATE
     Indication: END STAGE RENAL DISEASE
     Route: 033
  2. INSULIN LISPRO [Concomitant]
     Active Substance: INSULIN LISPRO
  3. INSULIN GLARGINE [Concomitant]
     Active Substance: INSULIN GLARGINE

REACTIONS (5)
  - Staphylococcal infection [None]
  - Peritonitis bacterial [Recovered/Resolved]
  - Abdominal pain [None]
  - Diarrhoea [None]
  - Wrong technique in product usage process [None]
